FAERS Safety Report 9314336 (Version 1)
Quarter: 2013Q2

REPORT INFORMATION
  Report Type: Spontaneous
  Country: US (occurrence: US)
  Receive Date: 20130529
  Receipt Date: 20130529
  Transmission Date: 20140414
  Serious: Yes (Life-Threatening)
  Sender: FDA-Public Use
  Company Number: US-COVIDIEN/TYCO HEALTHCARE/MALLINCKRODT-T201302373

PATIENT
  Age: 61 Year
  Sex: Male

DRUGS (2)
  1. METHADOSE [Suspect]
     Indication: DRUG DEPENDENCE
  2. SUBOXONE [Suspect]
     Indication: DRUG DEPENDENCE
     Dosage: 8/2 MG

REACTIONS (10)
  - Acute lung injury [Unknown]
  - Acidosis [Unknown]
  - Rhabdomyolysis [Unknown]
  - Pneumonia aspiration [Unknown]
  - Hyperglycaemia [Unknown]
  - Withdrawal syndrome [Unknown]
  - Hypertension [Unknown]
  - Incontinence [Unknown]
  - Tachycardia [Unknown]
  - Vomiting [Unknown]
